FAERS Safety Report 9249653 (Version 5)
Quarter: 2013Q3

REPORT INFORMATION
  Report Type: Report from Study
  Country: US (occurrence: US)
  Receive Date: 20130423
  Receipt Date: 20130920
  Transmission Date: 20140515
  Serious: Yes (Death, Hospitalization, Other)
  Sender: FDA-Public Use
  Company Number: US-ACTELION-A-US2013-82354

PATIENT
  Age: 65 Year
  Sex: Male

DRUGS (5)
  1. TRACLEER [Suspect]
     Indication: PULMONARY ARTERIAL HYPERTENSION
     Dosage: UNK
     Route: 048
  2. VENTAVIS [Suspect]
     Indication: PULMONARY ARTERIAL HYPERTENSION
     Route: 055
  3. SILDENAFIL [Concomitant]
     Indication: PULMONARY ARTERIAL HYPERTENSION
  4. COUMADIN [Concomitant]
  5. LASIX [Concomitant]

REACTIONS (2)
  - Pancreatic carcinoma [Fatal]
  - Pulmonary embolism [Recovering/Resolving]
